FAERS Safety Report 11458691 (Version 1)
Quarter: 2015Q3

REPORT INFORMATION
  Report Type: Report from Study
  Country: FR (occurrence: FR)
  Receive Date: 20150904
  Receipt Date: 20150904
  Transmission Date: 20151125
  Serious: Yes (Hospitalization, Other)
  Sender: FDA-Public Use
  Company Number: FR-ROCHE-1629040

PATIENT
  Sex: Female
  Weight: 60 kg

DRUGS (175)
  1. TOCILIZUMAB [Suspect]
     Active Substance: TOCILIZUMAB
     Indication: RHEUMATOID ARTHRITIS
     Route: 042
     Dates: start: 20101001
  2. TOCILIZUMAB [Suspect]
     Active Substance: TOCILIZUMAB
     Route: 042
     Dates: start: 20110322
  3. TOCILIZUMAB [Suspect]
     Active Substance: TOCILIZUMAB
     Dosage: ANOTHER DOSE RECEIVED ON 19/JUN/2012, 20/JUL/2012, 21/AUG/2012, 18/SEP/2012
     Route: 042
     Dates: start: 20120522
  4. METHOTREXATE [Concomitant]
     Active Substance: METHOTREXATE
     Route: 065
     Dates: start: 20111230
  5. METHOTREXATE [Concomitant]
     Active Substance: METHOTREXATE
     Route: 065
     Dates: start: 20120224
  6. CORTANCYL [Concomitant]
     Active Substance: PREDNISONE
     Route: 065
     Dates: start: 20101126
  7. CORTANCYL [Concomitant]
     Active Substance: PREDNISONE
     Route: 065
     Dates: start: 20110905
  8. CORTANCYL [Concomitant]
     Active Substance: PREDNISONE
     Route: 065
     Dates: start: 20111102
  9. CORTANCYL [Concomitant]
     Active Substance: PREDNISONE
     Route: 065
     Dates: start: 20111129
  10. CORTANCYL [Concomitant]
     Active Substance: PREDNISONE
     Dosage: ANOTHER DOSE ON 07/NOV/2013, 05/DEC/2013, 02/JAN/2014, 04/FEB/2014, 04/MAR/2014
     Route: 065
     Dates: start: 20131107
  11. SPECIAFOLDINE [Concomitant]
     Active Substance: FOLIC ACID
     Route: 065
     Dates: start: 20101126
  12. SPECIAFOLDINE [Concomitant]
     Active Substance: FOLIC ACID
     Route: 065
     Dates: start: 20111102
  13. CACIT D3 [Concomitant]
     Active Substance: CALCIUM\CHOLECALCIFEROL
     Route: 065
     Dates: start: 20111102
  14. CACIT D3 [Concomitant]
     Active Substance: CALCIUM\CHOLECALCIFEROL
     Route: 065
     Dates: start: 20120224
  15. PARACETAMOL [Concomitant]
     Active Substance: ACETAMINOPHEN
     Route: 065
     Dates: start: 20110125
  16. PARACETAMOL [Concomitant]
     Active Substance: ACETAMINOPHEN
     Route: 065
     Dates: start: 20110222
  17. PARACETAMOL [Concomitant]
     Active Substance: ACETAMINOPHEN
     Route: 065
     Dates: start: 20110812
  18. TOPALGIC (FRANCE) [Concomitant]
     Active Substance: TRAMADOL
     Dosage: 4 DF QD IN CASE OF PAIN
     Route: 065
     Dates: start: 20101126
  19. TOPALGIC (FRANCE) [Concomitant]
     Active Substance: TRAMADOL
     Dosage: 4 DF QD IN CASE OF PAIN
     Route: 065
     Dates: start: 20110125
  20. RIVOTRIL [Concomitant]
     Active Substance: CLONAZEPAM
     Dosage: 15 DROPS QD
     Route: 065
     Dates: start: 20110222
  21. RIVOTRIL [Concomitant]
     Active Substance: CLONAZEPAM
     Dosage: 15 DROPS QD
     Route: 065
     Dates: start: 20110812
  22. INEXIUM [Concomitant]
     Active Substance: ESOMEPRAZOLE
     Route: 065
     Dates: start: 20101228
  23. CELEBREX [Concomitant]
     Active Substance: CELECOXIB
     Route: 065
     Dates: start: 20101228
  24. CELEBREX [Concomitant]
     Active Substance: CELECOXIB
     Route: 065
     Dates: start: 20110222
  25. TOCILIZUMAB [Suspect]
     Active Substance: TOCILIZUMAB
     Route: 042
     Dates: start: 20110222
  26. CORTANCYL [Concomitant]
     Active Substance: PREDNISONE
     Route: 065
  27. CORTANCYL [Concomitant]
     Active Substance: PREDNISONE
     Route: 065
     Dates: start: 20101029
  28. CORTANCYL [Concomitant]
     Active Substance: PREDNISONE
     Route: 065
     Dates: start: 20101228
  29. CORTANCYL [Concomitant]
     Active Substance: PREDNISONE
     Route: 065
     Dates: start: 20110125
  30. CORTANCYL [Concomitant]
     Active Substance: PREDNISONE
     Route: 065
     Dates: start: 20120127
  31. SPECIAFOLDINE [Concomitant]
     Active Substance: FOLIC ACID
     Route: 065
     Dates: start: 20120224
  32. SPECIAFOLDINE [Concomitant]
     Active Substance: FOLIC ACID
     Route: 065
     Dates: start: 20120323
  33. SPECIAFOLDINE [Concomitant]
     Active Substance: FOLIC ACID
     Dosage: ANOTHER DOSE RECEIVED ON 19/JUN/2012, 20/JUL/2012, 21/AUG/2012, 18/SEP/2012
     Route: 065
     Dates: start: 20120522
  34. CACIT D3 [Concomitant]
     Active Substance: CALCIUM\CHOLECALCIFEROL
     Route: 065
     Dates: start: 20110812
  35. CACIT D3 [Concomitant]
     Active Substance: CALCIUM\CHOLECALCIFEROL
     Route: 065
     Dates: start: 20120127
  36. PARACETAMOL [Concomitant]
     Active Substance: ACETAMINOPHEN
     Route: 065
     Dates: start: 20110713
  37. RIVOTRIL [Concomitant]
     Active Substance: CLONAZEPAM
     Dosage: 15 DROPS QD
     Route: 065
     Dates: start: 20101029
  38. RIVOTRIL [Concomitant]
     Active Substance: CLONAZEPAM
     Dosage: 15 DROPS QD
     Route: 065
     Dates: start: 20110322
  39. ZOLPIDEM [Concomitant]
     Active Substance: ZOLPIDEM\ZOLPIDEM TARTRATE
     Route: 065
     Dates: start: 20110812
  40. ZOLPIDEM [Concomitant]
     Active Substance: ZOLPIDEM\ZOLPIDEM TARTRATE
     Dosage: ANOTHER DOSE RECEIVED ON 02/APR/2013, 29/APR/2013, 27/MAY/2013, 24/JUN/2013, 22/JUL/2013, 22/AUG/201
     Route: 065
     Dates: start: 20110905
  41. INEXIUM [Concomitant]
     Active Substance: ESOMEPRAZOLE
     Route: 065
     Dates: start: 20110713
  42. CELEBREX [Concomitant]
     Active Substance: CELECOXIB
     Dosage: ON 16/OCT/2012, 13/NOV/2012, 10/DEC/2012, 07/JAN/2013, 04/FEB/2013, 04/MAR/2013, 02/APR/2013, 29/APR
     Route: 065
     Dates: start: 20121016
  43. CRESTOR [Concomitant]
     Active Substance: ROSUVASTATIN CALCIUM
     Dosage: ON 16/OCT/2012, 13/NOV/2012, 10/DEC/2012, 07/JAN/2013, 04/FEB/2013, 04/MAR/2013, RECEIVED ANOTHER DO
     Route: 065
     Dates: start: 20121016
  44. TOCILIZUMAB [Suspect]
     Active Substance: TOCILIZUMAB
     Route: 042
     Dates: start: 20101029
  45. TOCILIZUMAB [Suspect]
     Active Substance: TOCILIZUMAB
     Route: 042
     Dates: start: 20101228
  46. TOCILIZUMAB [Suspect]
     Active Substance: TOCILIZUMAB
     Route: 042
     Dates: start: 20110812
  47. TOCILIZUMAB [Suspect]
     Active Substance: TOCILIZUMAB
     Route: 042
     Dates: start: 20120127
  48. TOCILIZUMAB [Suspect]
     Active Substance: TOCILIZUMAB
     Route: 042
     Dates: start: 20121016
  49. TOCILIZUMAB [Suspect]
     Active Substance: TOCILIZUMAB
     Route: 042
     Dates: start: 20121113
  50. TOCILIZUMAB [Suspect]
     Active Substance: TOCILIZUMAB
     Dosage: ON 07/JAN/2013, 04/FEB/2013, 04/MAR/2013,RECEIVED ANOTHER DOSE
     Route: 042
     Dates: start: 20121210
  51. TOCILIZUMAB [Suspect]
     Active Substance: TOCILIZUMAB
     Dosage: ANOTHER DOSE RECEIVED ON 7/NOV/2013, 05/DEC/2013, 02/JAN/2014, 04/FEB/2014 (480 MG), 04/MAR/2014 (48
     Route: 042
     Dates: start: 20130402
  52. METHOTREXATE [Concomitant]
     Active Substance: METHOTREXATE
     Route: 065
     Dates: start: 20110125
  53. METHOTREXATE [Concomitant]
     Active Substance: METHOTREXATE
     Route: 065
     Dates: start: 20110222
  54. METHOTREXATE [Concomitant]
     Active Substance: METHOTREXATE
     Route: 065
     Dates: start: 20110905
  55. METHOTREXATE [Concomitant]
     Active Substance: METHOTREXATE
     Route: 065
     Dates: start: 20111129
  56. METHOTREXATE [Concomitant]
     Active Substance: METHOTREXATE
     Dosage: ANOTHER DOSE RECEIVED ON 19/JUN/2012, 20/JUL/2012, 21/AUG/2012, 18/SEP/2012
     Route: 065
     Dates: start: 20120522
  57. CORTANCYL [Concomitant]
     Active Substance: PREDNISONE
     Route: 065
     Dates: start: 20110322
  58. CORTANCYL [Concomitant]
     Active Substance: PREDNISONE
     Route: 065
     Dates: start: 20110610
  59. CORTANCYL [Concomitant]
     Active Substance: PREDNISONE
     Route: 065
     Dates: start: 20110812
  60. CORTANCYL [Concomitant]
     Active Substance: PREDNISONE
     Route: 065
     Dates: start: 20111005
  61. SPECIAFOLDINE [Concomitant]
     Active Substance: FOLIC ACID
     Route: 065
     Dates: start: 20110125
  62. SPECIAFOLDINE [Concomitant]
     Active Substance: FOLIC ACID
     Route: 065
     Dates: start: 20110322
  63. SPECIAFOLDINE [Concomitant]
     Active Substance: FOLIC ACID
     Route: 065
     Dates: start: 20110905
  64. SPECIAFOLDINE [Concomitant]
     Active Substance: FOLIC ACID
     Route: 065
     Dates: start: 20111129
  65. SPECIAFOLDINE [Concomitant]
     Active Substance: FOLIC ACID
     Route: 065
     Dates: start: 20111230
  66. PARACETAMOL [Concomitant]
     Active Substance: ACETAMINOPHEN
     Route: 065
     Dates: start: 20101126
  67. PARACETAMOL [Concomitant]
     Active Substance: ACETAMINOPHEN
     Route: 065
     Dates: start: 20101228
  68. TOPALGIC (FRANCE) [Concomitant]
     Active Substance: TRAMADOL
     Dosage: 4 DF QD IN CASE OF PAIN
     Route: 065
     Dates: start: 20110222
  69. TOPALGIC (FRANCE) [Concomitant]
     Active Substance: TRAMADOL
     Dosage: 4 DF QD IN CASE OF PAIN
     Route: 065
     Dates: start: 20110905
  70. ZOLPIDEM [Concomitant]
     Active Substance: ZOLPIDEM\ZOLPIDEM TARTRATE
     Route: 065
     Dates: start: 20101126
  71. ZOLPIDEM [Concomitant]
     Active Substance: ZOLPIDEM\ZOLPIDEM TARTRATE
     Route: 065
     Dates: start: 20101228
  72. INEXIUM [Concomitant]
     Active Substance: ESOMEPRAZOLE
     Route: 065
     Dates: start: 20110322
  73. INEXIUM [Concomitant]
     Active Substance: ESOMEPRAZOLE
     Route: 065
     Dates: start: 20110905
  74. IXPRIM [Concomitant]
     Active Substance: ACETAMINOPHEN\TRAMADOL HYDROCHLORIDE
     Dosage: ANOTHER DOSE RECEIVED ON 19/JUN/2012, 20/JUL/2012, 21/AUG/2012, 18/SEP/2012, 02/APR/2013, 29/APR/201
     Route: 065
     Dates: start: 20120522
  75. NORSET [Concomitant]
     Active Substance: MIRTAZAPINE
     Dosage: ANOTHER DOSE RECEIVED ON 19/JUN/2012, 20/JUL/2012, 21/AUG/2012, 18/SEP/2012
     Route: 065
     Dates: start: 20120522
  76. TOCILIZUMAB [Suspect]
     Active Substance: TOCILIZUMAB
     Dosage: ANOTHER DOSE RECEIVED ON 02/APR/2013, 29/APR/2013, 27/MAY/2013, 24/JUN/2013, 22/JUL/2013, 22/AUG/201
     Route: 042
     Dates: start: 20130402
  77. SPECIAFOLDINE [Concomitant]
     Active Substance: FOLIC ACID
     Route: 065
     Dates: start: 20110610
  78. SPECIAFOLDINE [Concomitant]
     Active Substance: FOLIC ACID
     Route: 065
     Dates: start: 20111005
  79. CACIT D3 [Concomitant]
     Active Substance: CALCIUM\CHOLECALCIFEROL
     Route: 065
     Dates: start: 20110322
  80. CACIT D3 [Concomitant]
     Active Substance: CALCIUM\CHOLECALCIFEROL
     Route: 065
     Dates: start: 20111129
  81. PARACETAMOL [Concomitant]
     Active Substance: ACETAMINOPHEN
     Route: 065
     Dates: start: 20110610
  82. RIVOTRIL [Concomitant]
     Active Substance: CLONAZEPAM
     Dosage: 15 DROPS QD
     Route: 065
     Dates: start: 20110610
  83. RIVOTRIL [Concomitant]
     Active Substance: CLONAZEPAM
     Dosage: 10 DROPS?ON 19/JUN/2012, 20/JUL/2012, 21/AUG/2012, 18/SEP/2012 RECEIVED ANOTHER DOSE
     Route: 065
     Dates: start: 20120522
  84. INEXIUM [Concomitant]
     Active Substance: ESOMEPRAZOLE
     Route: 065
     Dates: start: 20101126
  85. INEXIUM [Concomitant]
     Active Substance: ESOMEPRAZOLE
     Route: 065
     Dates: start: 20110125
  86. INEXIUM [Concomitant]
     Active Substance: ESOMEPRAZOLE
     Route: 065
     Dates: start: 20110610
  87. CELEBREX [Concomitant]
     Active Substance: CELECOXIB
     Route: 065
     Dates: start: 20101126
  88. CELEBREX [Concomitant]
     Active Substance: CELECOXIB
     Route: 065
     Dates: start: 20110812
  89. CELEBREX [Concomitant]
     Active Substance: CELECOXIB
     Route: 065
     Dates: start: 20110905
  90. TOCILIZUMAB [Suspect]
     Active Substance: TOCILIZUMAB
     Route: 042
     Dates: start: 20101126
  91. TOCILIZUMAB [Suspect]
     Active Substance: TOCILIZUMAB
     Route: 042
     Dates: start: 20110610
  92. TOCILIZUMAB [Suspect]
     Active Substance: TOCILIZUMAB
     Route: 042
     Dates: start: 20111005
  93. TOCILIZUMAB [Suspect]
     Active Substance: TOCILIZUMAB
     Route: 042
     Dates: start: 20111230
  94. METHOTREXATE [Concomitant]
     Active Substance: METHOTREXATE
     Route: 065
  95. METHOTREXATE [Concomitant]
     Active Substance: METHOTREXATE
     Route: 065
     Dates: start: 20101029
  96. METHOTREXATE [Concomitant]
     Active Substance: METHOTREXATE
     Route: 065
     Dates: start: 20101126
  97. METHOTREXATE [Concomitant]
     Active Substance: METHOTREXATE
     Route: 065
     Dates: start: 20110713
  98. METHOTREXATE [Concomitant]
     Active Substance: METHOTREXATE
     Route: 065
     Dates: start: 20111102
  99. CORTANCYL [Concomitant]
     Active Substance: PREDNISONE
     Route: 065
     Dates: start: 20120224
  100. SPECIAFOLDINE [Concomitant]
     Active Substance: FOLIC ACID
     Route: 065
     Dates: start: 20101228
  101. SPECIAFOLDINE [Concomitant]
     Active Substance: FOLIC ACID
     Route: 065
     Dates: start: 20110222
  102. CACIT D3 [Concomitant]
     Active Substance: CALCIUM\CHOLECALCIFEROL
     Route: 065
     Dates: start: 20110713
  103. CACIT D3 [Concomitant]
     Active Substance: CALCIUM\CHOLECALCIFEROL
     Route: 065
     Dates: start: 20110905
  104. CACIT D3 [Concomitant]
     Active Substance: CALCIUM\CHOLECALCIFEROL
     Route: 065
     Dates: start: 20111005
  105. CACIT D3 [Concomitant]
     Active Substance: CALCIUM\CHOLECALCIFEROL
     Route: 065
     Dates: start: 20120323
  106. RIVOTRIL [Concomitant]
     Active Substance: CLONAZEPAM
     Dosage: 15 DROPS QD
     Route: 065
     Dates: start: 20101126
  107. RIVOTRIL [Concomitant]
     Active Substance: CLONAZEPAM
     Dosage: 15 DROPS QD
     Route: 065
     Dates: start: 20101228
  108. RIVOTRIL [Concomitant]
     Active Substance: CLONAZEPAM
     Dosage: 15 DROPS QD
     Route: 065
     Dates: start: 20110125
  109. RIVOTRIL [Concomitant]
     Active Substance: CLONAZEPAM
     Dosage: 15 DROPS QD
     Route: 065
     Dates: start: 20110713
  110. ZOLPIDEM [Concomitant]
     Active Substance: ZOLPIDEM\ZOLPIDEM TARTRATE
     Route: 065
     Dates: start: 20110610
  111. CELEBREX [Concomitant]
     Active Substance: CELECOXIB
     Route: 065
     Dates: start: 20110222
  112. VALIUM [Concomitant]
     Active Substance: DIAZEPAM
     Dosage: ANOTHER DOSE RECEIVED ON 02/APR/2013, 29/APR/2013, 27/MAY/2013, 24/JUN/2013, 22/JUL/2013, 22/AUG/201
     Route: 065
  113. TOCILIZUMAB [Suspect]
     Active Substance: TOCILIZUMAB
     Route: 042
     Dates: start: 20121016
  114. METHOTREXATE [Concomitant]
     Active Substance: METHOTREXATE
     Route: 065
     Dates: start: 20110322
  115. METHOTREXATE [Concomitant]
     Active Substance: METHOTREXATE
     Route: 065
     Dates: start: 20110610
  116. CORTANCYL [Concomitant]
     Active Substance: PREDNISONE
     Route: 065
     Dates: start: 20110222
  117. CORTANCYL [Concomitant]
     Active Substance: PREDNISONE
     Dosage: ANOTHER DOSE RECEIVED ON 29/APR/2013, 27/MAY/2013, 24/JUN/2013, 22/JUL/2013, 22/AUG/2013
     Route: 065
     Dates: start: 20130402
  118. SPECIAFOLDINE [Concomitant]
     Active Substance: FOLIC ACID
     Route: 065
     Dates: start: 20120127
  119. SPECIAFOLDINE [Concomitant]
     Active Substance: FOLIC ACID
     Dosage: ON 16/OCT/2012, 13/NOV/2012, 10/DEC/2012, 07/JAN/2013, 04/FEB/2013, 04/MAR/2013, RECEIVED ANOTHER DO
     Route: 065
     Dates: start: 20121016
  120. CACIT D3 [Concomitant]
     Active Substance: CALCIUM\CHOLECALCIFEROL
     Route: 065
     Dates: start: 20101029
  121. CACIT D3 [Concomitant]
     Active Substance: CALCIUM\CHOLECALCIFEROL
     Route: 065
     Dates: start: 20101126
  122. CACIT D3 [Concomitant]
     Active Substance: CALCIUM\CHOLECALCIFEROL
     Route: 065
     Dates: start: 20101228
  123. CACIT D3 [Concomitant]
     Active Substance: CALCIUM\CHOLECALCIFEROL
     Route: 065
     Dates: start: 20110125
  124. CACIT D3 [Concomitant]
     Active Substance: CALCIUM\CHOLECALCIFEROL
     Route: 065
     Dates: start: 20110610
  125. PARACETAMOL [Concomitant]
     Active Substance: ACETAMINOPHEN
     Route: 065
     Dates: start: 20110322
  126. PARACETAMOL [Concomitant]
     Active Substance: ACETAMINOPHEN
     Route: 065
     Dates: start: 20110905
  127. TOPALGIC (FRANCE) [Concomitant]
     Active Substance: TRAMADOL
     Dosage: 4 DF QD IN CASE OF PAIN
     Route: 065
     Dates: start: 20101228
  128. ZOLPIDEM [Concomitant]
     Active Substance: ZOLPIDEM\ZOLPIDEM TARTRATE
     Route: 065
     Dates: start: 20101029
  129. ZOLPIDEM [Concomitant]
     Active Substance: ZOLPIDEM\ZOLPIDEM TARTRATE
     Route: 065
     Dates: start: 20110125
  130. INEXIUM [Concomitant]
     Active Substance: ESOMEPRAZOLE
     Dosage: ON 16/OCT/2012, 13/NOV/2012, 10/DEC/2012, 07/JAN/2013, 04/FEB/2013, 04/MAR/2013, 02/APR/2013, 29/APR
     Route: 065
     Dates: start: 20121016
  131. CELEBREX [Concomitant]
     Active Substance: CELECOXIB
     Route: 065
     Dates: start: 20110610
  132. CELEBREX [Concomitant]
     Active Substance: CELECOXIB
     Route: 065
     Dates: start: 20110713
  133. TOCILIZUMAB [Suspect]
     Active Substance: TOCILIZUMAB
     Route: 042
     Dates: start: 20110713
  134. TOCILIZUMAB [Suspect]
     Active Substance: TOCILIZUMAB
     Route: 042
     Dates: start: 20110905
  135. TOCILIZUMAB [Suspect]
     Active Substance: TOCILIZUMAB
     Route: 042
     Dates: start: 20111102
  136. TOCILIZUMAB [Suspect]
     Active Substance: TOCILIZUMAB
     Route: 042
     Dates: start: 20111129
  137. METHOTREXATE [Concomitant]
     Active Substance: METHOTREXATE
     Route: 065
     Dates: start: 20101228
  138. METHOTREXATE [Concomitant]
     Active Substance: METHOTREXATE
     Route: 065
     Dates: start: 20111005
  139. METHOTREXATE [Concomitant]
     Active Substance: METHOTREXATE
     Dosage: ON 16/OCT/2012, 13/NOV/2012, 10/DEC/2012, 07/JAN/2013, 04/FEB/2013, 04/MAR/2013, RECEIVED ANOTHER DO
     Route: 065
     Dates: start: 20121016
  140. CORTANCYL [Concomitant]
     Active Substance: PREDNISONE
     Route: 065
     Dates: start: 20110713
  141. CORTANCYL [Concomitant]
     Active Substance: PREDNISONE
     Dosage: ON 16/OCT/2012, 13/NOV/2012, 10/DEC/2012, 07/JAN/2013, 04/FEB/2013, 04/MAR/2013, RECEIVED ANOTHER DO
     Route: 065
     Dates: start: 20121016
  142. SPECIAFOLDINE [Concomitant]
     Active Substance: FOLIC ACID
     Route: 065
     Dates: start: 20101029
  143. SPECIAFOLDINE [Concomitant]
     Active Substance: FOLIC ACID
     Route: 065
     Dates: start: 20110713
  144. SPECIAFOLDINE [Concomitant]
     Active Substance: FOLIC ACID
     Dosage: ANOTHER DOSE RECEIVED ON  29/APR/2013, 27/MAY/2013, 24/JUN/2013, 22/JUL/2013, 22/AUG/2013,
     Route: 065
     Dates: start: 20130402
  145. CACIT D3 [Concomitant]
     Active Substance: CALCIUM\CHOLECALCIFEROL
     Route: 065
     Dates: start: 20110222
  146. CACIT D3 [Concomitant]
     Active Substance: CALCIUM\CHOLECALCIFEROL
     Route: 065
     Dates: start: 20111230
  147. PARACETAMOL [Concomitant]
     Active Substance: ACETAMINOPHEN
     Route: 065
     Dates: start: 20101029
  148. TOPALGIC (FRANCE) [Concomitant]
     Active Substance: TRAMADOL
     Dosage: 4 DF QD IN CASE OF PAIN
     Route: 065
     Dates: start: 20101029
  149. TOPALGIC (FRANCE) [Concomitant]
     Active Substance: TRAMADOL
     Dosage: 4 DF QD IN CASE OF PAIN
     Route: 065
     Dates: start: 20110710
  150. TOPALGIC (FRANCE) [Concomitant]
     Active Substance: TRAMADOL
     Dosage: 4 DF QD IN CASE OF PAIN
     Route: 065
     Dates: start: 20110812
  151. RIVOTRIL [Concomitant]
     Active Substance: CLONAZEPAM
     Dosage: 10 DROPS?ON 16/OCT/2012, 13/NOV/2012, 10/DEC/2012, 07/JAN/2013, 04/FEB/2013, 04/MAR/2013, 02/APR/201
     Route: 065
     Dates: start: 20121016
  152. ZOLPIDEM [Concomitant]
     Active Substance: ZOLPIDEM\ZOLPIDEM TARTRATE
     Route: 065
     Dates: start: 20110222
  153. ZOLPIDEM [Concomitant]
     Active Substance: ZOLPIDEM\ZOLPIDEM TARTRATE
     Route: 065
     Dates: start: 20110322
  154. INEXIUM [Concomitant]
     Active Substance: ESOMEPRAZOLE
     Route: 065
     Dates: start: 20101029
  155. INEXIUM [Concomitant]
     Active Substance: ESOMEPRAZOLE
     Route: 065
     Dates: start: 20110222
  156. TOCILIZUMAB [Suspect]
     Active Substance: TOCILIZUMAB
     Route: 042
     Dates: start: 20110125
  157. TOCILIZUMAB [Suspect]
     Active Substance: TOCILIZUMAB
     Route: 042
     Dates: start: 20120224
  158. TOCILIZUMAB [Suspect]
     Active Substance: TOCILIZUMAB
     Route: 042
     Dates: start: 20120323
  159. METHOTREXATE [Concomitant]
     Active Substance: METHOTREXATE
     Route: 065
     Dates: start: 20110812
  160. METHOTREXATE [Concomitant]
     Active Substance: METHOTREXATE
     Route: 065
     Dates: start: 20120127
  161. METHOTREXATE [Concomitant]
     Active Substance: METHOTREXATE
     Route: 065
     Dates: start: 20120323
  162. METHOTREXATE [Concomitant]
     Active Substance: METHOTREXATE
     Dosage: ANOTHER DOSE RECEIVED ON 02/APR/2013, 29/APR/2013, 27/MAY/2013, 24/JUN/2013, 22/JUL/2013, 22/AUG/201
     Route: 065
     Dates: start: 20130402
  163. CORTANCYL [Concomitant]
     Active Substance: PREDNISONE
     Route: 065
     Dates: start: 20111230
  164. CORTANCYL [Concomitant]
     Active Substance: PREDNISONE
     Route: 065
     Dates: start: 20120323
  165. CORTANCYL [Concomitant]
     Active Substance: PREDNISONE
     Dosage: ANOTHER DOSE RECEIVED ON 19/JUN/2012, 20/JUL/2012, 21/AUG/2012, 18/SEP/2012
     Route: 065
     Dates: start: 20120522
  166. SPECIAFOLDINE [Concomitant]
     Active Substance: FOLIC ACID
     Route: 065
     Dates: start: 20110812
  167. CACIT D3 [Concomitant]
     Active Substance: CALCIUM\CHOLECALCIFEROL
     Route: 065
     Dates: start: 20120323
  168. TOPALGIC (FRANCE) [Concomitant]
     Active Substance: TRAMADOL
     Dosage: 4 DF QD IN CASE OF PAIN
     Route: 065
     Dates: start: 20110322
  169. TOPALGIC (FRANCE) [Concomitant]
     Active Substance: TRAMADOL
     Dosage: 4 DF QD IN CASE OF PAIN
     Route: 065
     Dates: start: 20110610
  170. RIVOTRIL [Concomitant]
     Active Substance: CLONAZEPAM
     Dosage: 15 DROPS QD?ON 05/OCT/2011, 02/NOV/2011, 29/NOV/2011, 30/DEC/2011, 27/JAN/2012, 24/FEB/2012, 23/MAR
     Route: 065
     Dates: start: 20110905
  171. ZOLPIDEM [Concomitant]
     Active Substance: ZOLPIDEM\ZOLPIDEM TARTRATE
     Route: 065
     Dates: start: 20110713
  172. INEXIUM [Concomitant]
     Active Substance: ESOMEPRAZOLE
     Route: 065
     Dates: start: 20110812
  173. CELEBREX [Concomitant]
     Active Substance: CELECOXIB
     Route: 065
     Dates: start: 20101029
  174. CELEBREX [Concomitant]
     Active Substance: CELECOXIB
     Route: 065
     Dates: start: 20110125
  175. CRESTOR [Concomitant]
     Active Substance: ROSUVASTATIN CALCIUM
     Dosage: ANOTHER DOSE RECEIVED ON 02/APR/2013, 29/APR/2013, 27/MAY/2013, 24/JUN/2013, 22/JUL/2013, 22/AUG/201
     Route: 065
     Dates: start: 20130402

REACTIONS (3)
  - Squamous cell carcinoma [Recovered/Resolved]
  - Hypertriglyceridaemia [Not Recovered/Not Resolved]
  - Pneumonia [Recovered/Resolved]

NARRATIVE: CASE EVENT DATE: 20120306
